FAERS Safety Report 18180885 (Version 1)
Quarter: 2020Q3

REPORT INFORMATION
  Report Type: Spontaneous
  Country: US (occurrence: US)
  Receive Date: 20200821
  Receipt Date: 20200821
  Transmission Date: 20201103
  Serious: Yes (Other)
  Sender: FDA-Public Use
  Company Number: None

PATIENT
  Sex: Female
  Weight: 54.45 kg

DRUGS (7)
  1. PACE MAKER [Concomitant]
  2. ELIQUIS [Concomitant]
     Active Substance: APIXABAN
  3. SYNTHROID [Concomitant]
     Active Substance: LEVOTHYROXINE SODIUM
  4. COLCHICINE. [Concomitant]
     Active Substance: COLCHICINE
  5. HYDROCODONE [Concomitant]
     Active Substance: HYDROCODONE
  6. LATANOPROST. [Concomitant]
     Active Substance: LATANOPROST
  7. PROLIA [Suspect]
     Active Substance: DENOSUMAB

REACTIONS (4)
  - Back pain [None]
  - Myalgia [None]
  - Neck pain [None]
  - Joint stiffness [None]
